FAERS Safety Report 8991975 (Version 1)
Quarter: 2012Q4

REPORT INFORMATION
  Report Type: 
  Country: US (occurrence: US)
  Receive Date: 20121231
  Receipt Date: 20121231
  Transmission Date: 20130627
  Serious: Yes (Death)
  Sender: FDA-Public Use
  Company Number: US-ASTELLAS-2012US012795

PATIENT
  Age: 73 Year
  Sex: Male

DRUGS (1)
  1. PROGRAF [Suspect]
     Indication: HEART TRANSPLANT
     Dosage: 2 mg, bid
     Route: 048
     Dates: start: 20120110, end: 20121128

REACTIONS (1)
  - Myocardial infarction [Fatal]
